FAERS Safety Report 9291604 (Version 1)
Quarter: 2013Q2

REPORT INFORMATION
  Report Type: Other
  Country: GB (occurrence: GB)
  Receive Date: 20130515
  Receipt Date: 20130515
  Transmission Date: 20140414
  Serious: Yes (Other)
  Sender: FDA-Public Use
  Company Number: GB-WATSON-2013-08446

PATIENT
  Age: 31 Year
  Sex: Female

DRUGS (2)
  1. LAMOTRIGINE (UNKNOWN) [Suspect]
     Indication: EPILEPSY
     Dosage: 1 DF
     Route: 065
  2. LEVETIRACETAM [Concomitant]
     Indication: EPILEPSY
     Dosage: 1500 MG, BID
     Route: 065

REACTIONS (4)
  - Eyelids pruritus [Unknown]
  - Swelling [Unknown]
  - Periorbital oedema [Unknown]
  - Rash macular [Unknown]
